FAERS Safety Report 5960589-8 (Version None)
Quarter: 2008Q4

REPORT INFORMATION
  Report Type: 
  Country: None (occurrence: None)
  Receive Date: 20081120
  Receipt Date: 20080922
  Transmission Date: 20090506
  Serious: No
  Sender: FDA-Public Use
  Company Number: US-ABBOTT-08P-163-0477470-00

PATIENT
  Sex: Female
  Weight: 58.112 kg

DRUGS (1)
  1. BIAXIN [Suspect]
     Indication: ENDODONTIC PROCEDURE
     Route: 048
     Dates: start: 20070101, end: 20070101

REACTIONS (3)
  - PAIN [None]
  - RASH [None]
  - SWELLING [None]
